FAERS Safety Report 24834685 (Version 1)
Quarter: 2025Q1

REPORT INFORMATION
  Report Type: Spontaneous
  Country: US (occurrence: US)
  Receive Date: 20250113
  Receipt Date: 20250113
  Transmission Date: 20250409
  Serious: Yes (Death, Hospitalization)
  Sender: BAYER HEALTHCARE LLC
  Company Number: US-BAYER-2025A003236

PATIENT
  Age: 25 Year
  Sex: Male

DRUGS (7)
  1. NAPROXEN SODIUM [Suspect]
     Active Substance: NAPROXEN SODIUM
     Route: 048
  2. PROPRANOLOL [Suspect]
     Active Substance: PROPRANOLOL HYDROCHLORIDE
  3. CLOMIPRAMINE [Suspect]
     Active Substance: CLOMIPRAMINE
  4. QUETIAPINE [Suspect]
     Active Substance: QUETIAPINE
  5. OLANZAPINE [Suspect]
     Active Substance: OLANZAPINE
  6. ALPRAZOLAM [Suspect]
     Active Substance: ALPRAZOLAM
  7. DICLOFENAC [Suspect]
     Active Substance: DICLOFENAC

REACTIONS (1)
  - Toxicity to various agents [Fatal]
